FAERS Safety Report 5326895-5 (Version None)
Quarter: 2007Q2

REPORT INFORMATION
  Report Type: 
  Country: None (occurrence: None)
  Receive Date: 20070511
  Receipt Date: 20070507
  Transmission Date: 20071010
  Serious: Yes (Death, Other)
  Sender: FDA-Public Use
  Company Number: 2006SP007340

PATIENT
  Age: 62 Year
  Sex: Female
  Weight: 73 kg

DRUGS (6)
  1. TEMODAL [Suspect]
     Indication: GLIOBLASTOMA MULTIFORME
     Dosage: 130 MG; QD; PO
     Route: 048
  2. DILANTIN [Concomitant]
  3. VASOTEC HYDROCHLOROTHIAZIDE [Concomitant]
  4. RENEDIL [Concomitant]
  5. ATENOLOL [Concomitant]
  6. LIPITOR [Concomitant]

REACTIONS (1)
  - PANCYTOPENIA [None]
